FAERS Safety Report 9400451 (Version 2)
Quarter: 2013Q4

REPORT INFORMATION
  Report Type: Spontaneous
  Country: CA (occurrence: CA)
  Receive Date: 20130715
  Receipt Date: 20131007
  Transmission Date: 20140711
  Serious: Yes (Other)
  Sender: FDA-Public Use
  Company Number: CA-GLAXOSMITHKLINE-A0903112A

PATIENT
  Age: 55 Year
  Sex: Female

DRUGS (3)
  1. TYKERB [Suspect]
     Indication: HER-2 POSITIVE BREAST CANCER
     Dosage: 1250MG PER DAY
     Route: 048
     Dates: start: 20101207, end: 20130702
  2. XELODA [Suspect]
     Indication: PRODUCT USED FOR UNKNOWN INDICATION
     Route: 065
     Dates: start: 20101207, end: 20130702
  3. PAMIDRONATE [Concomitant]
     Route: 042

REACTIONS (10)
  - Diarrhoea [Unknown]
  - Vomiting [Unknown]
  - Oral mucosal blistering [Unknown]
  - Palmar-plantar erythrodysaesthesia syndrome [Unknown]
  - Hepatotoxicity [Not Recovered/Not Resolved]
  - Hepatic cancer [Unknown]
  - Hepatic enzyme increased [Not Recovered/Not Resolved]
  - Nausea [Unknown]
  - Weight decreased [Unknown]
  - Mucosal inflammation [Unknown]
